FAERS Safety Report 21927552 (Version 1)
Quarter: 2023Q1

REPORT INFORMATION
  Report Type: Spontaneous
  Country: US (occurrence: None)
  Receive Date: 20230130
  Receipt Date: 20230130
  Transmission Date: 20230418
  Serious: No
  Sender: FDA-Public Use
  Company Number: None

PATIENT
  Age: 64 Year
  Sex: Female
  Weight: 87.75 kg

DRUGS (11)
  1. PAXLOVID [Suspect]
     Active Substance: NIRMATRELVIR\RITONAVIR
     Indication: COVID-19
     Dosage: OTHER QUANTITY : 30 TABLET(S);?FREQUENCY : TWICE A DAY;?
     Route: 048
     Dates: start: 20230122, end: 20230127
  2. PAXLOVID [Suspect]
     Active Substance: NIRMATRELVIR\RITONAVIR
     Indication: Obesity
  3. PAXLOVID [Suspect]
     Active Substance: NIRMATRELVIR\RITONAVIR
     Indication: Sleep apnoea syndrome
  4. PAXLOVID [Suspect]
     Active Substance: NIRMATRELVIR\RITONAVIR
     Indication: Depression
  5. DEVICE [Concomitant]
     Active Substance: DEVICE
  6. CELEXA [Concomitant]
     Active Substance: CITALOPRAM HYDROBROMIDE
  7. BUPROPION [Concomitant]
     Active Substance: BUPROPION
  8. OXYBUTYNIN [Concomitant]
     Active Substance: OXYBUTYNIN
  9. SUMATRIPTAN [Concomitant]
     Active Substance: SUMATRIPTAN
  10. PIMECROLIMUS [Concomitant]
     Active Substance: PIMECROLIMUS
  11. multivitamin with iron calcium [Concomitant]

REACTIONS (6)
  - Product label confusion [None]
  - Product label issue [None]
  - Malaise [None]
  - Incorrect dose administered [None]
  - Product communication issue [None]
  - SARS-CoV-2 test positive [None]

NARRATIVE: CASE EVENT DATE: 20230122
